FAERS Safety Report 7700320-9 (Version None)
Quarter: 2011Q3

REPORT INFORMATION
  Report Type: 
  Country: None (occurrence: None)
  Receive Date: 20110822
  Receipt Date: 20110812
  Transmission Date: 20111222
  Serious: No
  Sender: FDA-Public Use
  Company Number: PHEH2011US01679

PATIENT
  Sex: Female
  Weight: 86.168 kg

DRUGS (15)
  1. ASPIRIN [Concomitant]
  2. LEXAPRO [Concomitant]
  3. MAGNESIUM [Concomitant]
  4. SEROQUEL [Concomitant]
  5. TASIGNA [Suspect]
     Indication: NEOPLASM MALIGNANT
     Dosage: 400 MG, BID
     Route: 048
     Dates: start: 20110121
  6. ZOFRAN [Concomitant]
  7. VITAMIN D [Concomitant]
  8. AMLODIPINE BESYLATE [Concomitant]
  9. POTASSIUM ACETATE [Concomitant]
     Dosage: UNK
  10. METFFORMIN HYDROCHLORIDE [Concomitant]
  11. TYLENOL-500 [Concomitant]
  12. TRAZODONE HYDROCHLORIDE [Concomitant]
  13. OSCAL 500-D [Concomitant]
  14. TORSEMIDE [Concomitant]
  15. LUMIGAN [Concomitant]

REACTIONS (2)
  - MUSCLE SPASMS [None]
  - CONCOMITANT DISEASE AGGRAVATED [None]
